FAERS Safety Report 20370547 (Version 1)
Quarter: 2022Q1

REPORT INFORMATION
  Report Type: Spontaneous
  Country: US (occurrence: US)
  Receive Date: 20220124
  Receipt Date: 20220124
  Transmission Date: 20220423
  Serious: No
  Sender: FDA-Public Use
  Company Number: US-GW PHARMA-202201USGW00267

PATIENT

DRUGS (4)
  1. EPIDIOLEX [Interacting]
     Active Substance: CANNABIDIOL
     Indication: Partial seizures
     Dosage: 5.43 MG/KG/DAY, 80 MILLIGRAM, BID
     Route: 048
     Dates: start: 20220113
  2. EPIDIOLEX [Interacting]
     Active Substance: CANNABIDIOL
     Indication: Idiopathic partial epilepsy
  3. EPIDIOLEX [Interacting]
     Active Substance: CANNABIDIOL
     Indication: Epilepsy
  4. CLOBAZAM [Interacting]
     Active Substance: CLOBAZAM
     Indication: Product used for unknown indication
     Dosage: UNK
     Route: 065

REACTIONS (5)
  - Feeding disorder [Unknown]
  - Somnolence [Not Recovered/Not Resolved]
  - Fatigue [Unknown]
  - Drug interaction [Unknown]
  - Product use in unapproved indication [Unknown]

NARRATIVE: CASE EVENT DATE: 20220101
